FAERS Safety Report 8839541 (Version 1)
Quarter: 2012Q4

REPORT INFORMATION
  Report Type: 
  Country: JP (occurrence: JP)
  Receive Date: 20121015
  Receipt Date: 20121015
  Transmission Date: 20130627
  Serious: Yes (Death, Other)
  Sender: FDA-Public Use
  Company Number: PHHY2012JP090064

PATIENT
  Age: 10 Year
  Sex: Female

DRUGS (3)
  1. BASILIXIMAB [Suspect]
     Indication: INTESTINAL TRANSPLANT
     Dosage: UNK UKN, UNK
  2. TACROLIMUS [Concomitant]
     Dosage: UNK UKN, UNK
  3. METHYLPREDNISOLONE [Concomitant]
     Dosage: 2 mg/kg/day

REACTIONS (12)
  - Encephalitis [Fatal]
  - Somnolence [Fatal]
  - Brain oedema [Fatal]
  - Pyrexia [Fatal]
  - Cerebral aspergillosis [Fatal]
  - Human herpesvirus 6 infection [Fatal]
  - Renal failure acute [Unknown]
  - Hepatic function abnormal [Unknown]
  - Jaundice [Unknown]
  - Intestine transplant rejection [Unknown]
  - Inflammation [Unknown]
  - Gastrointestinal mucosal disorder [Unknown]
